FAERS Safety Report 20937930 (Version 2)
Quarter: 2022Q4

REPORT INFORMATION
  Report Type: Report from Study
  Country: JP (occurrence: JP)
  Receive Date: 20220609
  Receipt Date: 20221026
  Transmission Date: 20230112
  Serious: Yes (Other)
  Sender: FDA-Public Use
  Company Number: JP-KYOWAKIRIN-2022AKK007144

PATIENT

DRUGS (14)
  1. BUROSUMAB [Suspect]
     Active Substance: BUROSUMAB
     Indication: Hereditary hypophosphataemic rickets
     Dosage: 80 MG
     Route: 058
     Dates: start: 20210419, end: 20210419
  2. BUROSUMAB [Suspect]
     Active Substance: BUROSUMAB
     Dosage: 80 MG, 1X/4 WEEKS
     Route: 058
     Dates: start: 20200522, end: 20200716
  3. BUROSUMAB [Suspect]
     Active Substance: BUROSUMAB
     Dosage: 80 MG
     Route: 058
     Dates: start: 20200820, end: 20200820
  4. BUROSUMAB [Suspect]
     Active Substance: BUROSUMAB
     Dosage: 80 MG
     Route: 058
     Dates: start: 20200910, end: 20200910
  5. BUROSUMAB [Suspect]
     Active Substance: BUROSUMAB
     Dosage: 80 MG
     Route: 058
     Dates: start: 20201015, end: 20201015
  6. BUROSUMAB [Suspect]
     Active Substance: BUROSUMAB
     Dosage: 80 MG
     Route: 058
     Dates: start: 20201112, end: 20201112
  7. BUROSUMAB [Suspect]
     Active Substance: BUROSUMAB
     Dosage: 80 MG
     Route: 058
     Dates: start: 20201212, end: 20201212
  8. BUROSUMAB [Suspect]
     Active Substance: BUROSUMAB
     Dosage: 80 MG
     Route: 058
     Dates: start: 20210112, end: 20210112
  9. BUROSUMAB [Suspect]
     Active Substance: BUROSUMAB
     Dosage: 80 MG
     Route: 058
     Dates: start: 20210215, end: 20210215
  10. BUROSUMAB [Suspect]
     Active Substance: BUROSUMAB
     Dosage: 80 MG
     Route: 058
     Dates: start: 20210322, end: 20210322
  11. BUROSUMAB [Suspect]
     Active Substance: BUROSUMAB
     Dosage: 80 MG
     Route: 058
     Dates: start: 20210519
  12. SODIUM PHOSPHATE, DIBASIC\SODIUM PHOSPHATE, MONOBASIC [Suspect]
     Active Substance: SODIUM PHOSPHATE, DIBASIC\SODIUM PHOSPHATE, MONOBASIC
     Indication: Product used for unknown indication
     Dosage: UNK
     Route: 065
  13. ALFAROL [Suspect]
     Active Substance: ALFACALCIDOL
     Indication: Product used for unknown indication
     Dosage: UNK
     Route: 065
  14. OLMESARTAN MEDOXOMIL [Concomitant]
     Active Substance: OLMESARTAN MEDOXOMIL
     Indication: Product used for unknown indication
     Dosage: UNK
     Route: 048

REACTIONS (1)
  - Nephrocalcinosis [Not Recovered/Not Resolved]

NARRATIVE: CASE EVENT DATE: 20210513
